FAERS Safety Report 25625648 (Version 3)
Quarter: 2025Q3

REPORT INFORMATION
  Report Type: Spontaneous
  Country: EU (occurrence: EU)
  Receive Date: 20250731
  Receipt Date: 20250902
  Transmission Date: 20251020
  Serious: Yes (Other)
  Sender: IPSEN BIOPHARMACEUTICALS, INC.
  Company Number: EU-IPSEN Group, Research and Development-2025-17853

PATIENT
  Age: 38 Year
  Sex: Female

DRUGS (1)
  1. IQIRVO [Suspect]
     Active Substance: ELAFIBRANOR
     Indication: Primary biliary cholangitis
     Dates: start: 202505, end: 202508

REACTIONS (5)
  - Autoimmune hepatitis [Unknown]
  - Hepatic fibrosis [Unknown]
  - Blood alkaline phosphatase increased [Unknown]
  - Blood alkaline phosphatase increased [Unknown]
  - Therapy non-responder [Unknown]
